FAERS Safety Report 5824168-5 (Version None)
Quarter: 2008Q3

REPORT INFORMATION
  Report Type: 
  Country: None (occurrence: None)
  Receive Date: 20080728
  Receipt Date: 20080723
  Transmission Date: 20090109
  Serious: Yes (Other)
  Sender: FDA-Public Use
  Company Number: HQWYE334422JUL04

PATIENT
  Sex: Female

DRUGS (5)
  1. PREMPRO [Suspect]
  2. PROVERA [Suspect]
  3. CYCRIN [Suspect]
  4. MEDROXYPROGESTERONE [Suspect]
  5. PREMARIN [Suspect]

REACTIONS (3)
  - BREAST CANCER METASTATIC [None]
  - OVARIAN CANCER [None]
  - THROMBOSIS [None]
